FAERS Safety Report 6543145-2 (Version None)
Quarter: 2010Q1

REPORT INFORMATION
  Report Type: 
  Country: None (occurrence: None)
  Receive Date: 20100120
  Receipt Date: 20100108
  Transmission Date: 20100710
  Serious: Yes (Hospitalization)
  Sender: FDA-Public Use
  Company Number: JP-AMGEN-US382201

PATIENT
  Age: 82 Year
  Sex: Male

DRUGS (2)
  1. ENBREL [Suspect]
     Indication: RHEUMATOID ARTHRITIS
     Dosage: 25 MG/A WEEK OR TWO WEEKS
     Route: 058
     Dates: start: 20060107
  2. ISONIAZID [Concomitant]
     Route: 048

REACTIONS (1)
  - BRONCHOPULMONARY ASPERGILLOSIS [None]
